FAERS Safety Report 8010363-6 (Version None)
Quarter: 2011Q4

REPORT INFORMATION
  Report Type: 
  Country: None (occurrence: None)
  Receive Date: 20111228
  Receipt Date: 20111220
  Transmission Date: 20120403
  Serious: Yes (Other)
  Sender: FDA-Public Use
  Company Number: JP-ASTELLAS-2011JP009487

PATIENT
  Age: 78 Year
  Sex: Male

DRUGS (7)
  1. CEFAZOLIN [Concomitant]
     Indication: SEPTIC SHOCK
     Route: 065
  2. SULFASALAZINE [Concomitant]
     Indication: RHEUMATOID ARTHRITIS
     Dosage: UNK
     Route: 048
     Dates: start: 20090901
  3. PREDNISOLONE [Concomitant]
     Indication: POLYMYALGIA RHEUMATICA
     Dosage: 15 MG, UNKNOWN/D
     Route: 065
     Dates: start: 20090801
  4. PREDNISOLONE [Concomitant]
     Dosage: UNK
     Route: 065
     Dates: start: 20090901
  5. MEROPENEM [Concomitant]
     Indication: SEPTIC SHOCK
     Route: 065
  6. PROGRAF [Suspect]
     Indication: RHEUMATOID ARTHRITIS
     Dosage: UNK
     Route: 065
     Dates: start: 20100401
  7. ETANERCEPT [Concomitant]
     Indication: RHEUMATOID ARTHRITIS
     Dosage: UNK
     Route: 065
     Dates: start: 20100501

REACTIONS (4)
  - SEPTIC SHOCK [None]
  - PORTAL VEIN THROMBOSIS [None]
  - ESCHERICHIA SEPSIS [None]
  - DISSEMINATED INTRAVASCULAR COAGULATION [None]
